FAERS Safety Report 10055836 (Version 1)
Quarter: 2014Q2

REPORT INFORMATION
  Report Type: Spontaneous
  Country: US (occurrence: US)
  Receive Date: 20140403
  Receipt Date: 20140403
  Transmission Date: 20141212
  Serious: Yes (Hospitalization)
  Sender: FDA-Public Use
  Company Number: US-ASTRAZENECA-2014SE21526

PATIENT
  Sex: Male

DRUGS (2)
  1. CRESTOR [Suspect]
     Route: 048
  2. OTHER UNKNOWN MEDICATIONS [Concomitant]
     Dosage: UNKNOWN UNK

REACTIONS (1)
  - Rhabdomyolysis [Unknown]
